FAERS Safety Report 11875386 (Version 1)
Quarter: 2015Q4

REPORT INFORMATION
  Report Type: Spontaneous
  Country: US (occurrence: None)
  Receive Date: 20151228
  Receipt Date: 20151228
  Transmission Date: 20160305
  Serious: Yes (Other)
  Sender: FDA-Public Use
  Company Number: None

PATIENT
  Sex: Female

DRUGS (1)
  1. AFINITOR [Suspect]
     Active Substance: EVEROLIMUS
     Indication: RESPIRATORY DISORDER
     Route: 048
     Dates: start: 20150930

REACTIONS (3)
  - Fatigue [None]
  - Epistaxis [None]
  - Rash [None]

NARRATIVE: CASE EVENT DATE: 2015
